FAERS Safety Report 4888661-4 (Version None)
Quarter: 2005Q4

REPORT INFORMATION
  Report Type: 
  Country: None (occurrence: None)
  Receive Date: 20051215
  Receipt Date: 20050307
  Transmission Date: 20060501
  Serious: Yes (Other)
  Sender: FDA-Public Use
  Company Number: 2005008546

PATIENT
  Age: 57 Year
  Sex: Female
  Weight: 99.7913 kg

DRUGS (9)
  1. BEXTRA [Suspect]
     Indication: ILL-DEFINED DISORDER
     Dosage: 10 MG (10 MG,1 IN 1 D),ORAL
     Route: 048
     Dates: start: 20041101
  2. DRUG USE IN DIABETES (DRUG USED IN DIABETES) [Concomitant]
  3. CHOLESTEROL- AND TRIGLYCERIDE REDUCERS (CHOLESTEROL- AND TRIGLYCERIDES [Concomitant]
  4. ANTIHYPERTENSIVES (ANTIHYPERTENSIVES) [Concomitant]
  5. ASPIRIN [Concomitant]
  6. IBUPROFEN [Concomitant]
  7. ACETAMINOPHEN [Concomitant]
  8. GLIPIZIDE [Concomitant]
  9. PRIMOX PLUS (HYDROCHLOROTHIAZIDE, MOEXIPRIL HYDROCHLORIDE) [Concomitant]

REACTIONS (5)
  - ABDOMINAL PAIN UPPER [None]
  - DRUG INEFFECTIVE [None]
  - FAECES DISCOLOURED [None]
  - HAEMATOCHEZIA [None]
  - PAIN [None]
